FAERS Safety Report 18391616 (Version 1)
Quarter: 2020Q4

REPORT INFORMATION
  Report Type: Spontaneous
  Country: JP (occurrence: JP)
  Receive Date: 20201016
  Receipt Date: 20201016
  Transmission Date: 20210114
  Serious: Yes (Life-Threatening, Other)
  Sender: FDA-Public Use
  Company Number: JP-ALKEM LABORATORIES LIMITED-JP-ALKEM-2020-01104

PATIENT
  Age: 75 Year
  Sex: Female

DRUGS (9)
  1. MILNACIPRAN [Suspect]
     Active Substance: MILNACIPRAN
     Indication: SOMATIC SYMPTOM DISORDER
     Dosage: 60 MILLIGRAM
     Route: 065
  2. BROMAZEPAM [Concomitant]
     Active Substance: BROMAZEPAM
     Indication: SOMATIC SYMPTOM DISORDER
     Dosage: 2 MILLIGRAM, DAILY
     Route: 065
  3. AMLODIPINE [Concomitant]
     Active Substance: AMLODIPINE BESYLATE
     Indication: HYPERTENSION
     Route: 065
  4. CANDESARTAN. [Concomitant]
     Active Substance: CANDESARTAN
     Indication: HYPERTENSION
     Route: 065
  5. PEROSPIRONE [Suspect]
     Active Substance: PEROSPIRONE
     Indication: SOMATIC SYMPTOM DISORDER
     Dosage: 4 MILLIGRAM
     Route: 065
  6. DULOXETINE HYDROCHLORIDE. [Suspect]
     Active Substance: DULOXETINE HYDROCHLORIDE
     Indication: PRODUCT USED FOR UNKNOWN INDICATION
     Dosage: 40 MILLIGRAM, QD
     Route: 065
  7. ANAGLIPTIN [Concomitant]
     Active Substance: ANAGLIPTIN
     Indication: DIABETES MELLITUS
     Route: 065
  8. METFORMIN [Concomitant]
     Active Substance: METFORMIN HYDROCHLORIDE
     Indication: DIABETES MELLITUS
     Route: 065
  9. PITAVASTATIN. [Concomitant]
     Active Substance: PITAVASTATIN CALCIUM
     Indication: DYSLIPIDAEMIA
     Route: 065

REACTIONS (1)
  - Serotonin syndrome [Unknown]
